FAERS Safety Report 4375751-8 (Version None)
Quarter: 2004Q2

REPORT INFORMATION
  Report Type: 
  Country: None (occurrence: None)
  Receive Date: 20040610
  Receipt Date: 20040525
  Transmission Date: 20050107
  Serious: Yes (Hospitalization)
  Sender: FDA-Public Use
  Company Number: US-BRISTOL-MYERS SQUIBB COMPANY-12596110

PATIENT
  Sex: Female

DRUGS (1)
  1. ERBITUX [Suspect]
     Indication: SMALL INTESTINE CARCINOMA METASTATIC
     Dosage: LOADING DOSE
     Route: 042
     Dates: start: 20040519, end: 20040519

REACTIONS (3)
  - BRONCHOSPASM [None]
  - HYPERTENSION [None]
  - RASH GENERALISED [None]
